FAERS Safety Report 18382968 (Version 1)
Quarter: 2020Q4

REPORT INFORMATION
  Report Type: Spontaneous
  Country: US (occurrence: US)
  Receive Date: 20201014
  Receipt Date: 20201014
  Transmission Date: 20210114
  Serious: Yes (Death, Other)
  Sender: FDA-Public Use
  Company Number: US-PURDUE-USA-2020-0169312

PATIENT
  Sex: Male

DRUGS (2)
  1. PERCOCET                           /00446701/ [Suspect]
     Active Substance: ACETAMINOPHEN\OXYCODONE HYDROCHLORIDE\OXYCODONE TEREPHTHALATE
     Indication: PAIN
     Dosage: UNK
     Route: 065
  2. DILAUDID [Suspect]
     Active Substance: HYDROMORPHONE HYDROCHLORIDE
     Indication: SURGERY
     Dosage: UNK
     Route: 048

REACTIONS (6)
  - Pain [Unknown]
  - Emotional distress [Unknown]
  - HIV infection [Unknown]
  - Alcohol abuse [Unknown]
  - Hepatitis C [Unknown]
  - Drug dependence [Fatal]
